FAERS Safety Report 8817057 (Version 1)
Quarter: 2012Q4

REPORT INFORMATION
  Report Type: Spontaneous
  Country: US (occurrence: None)
  Receive Date: 20121003
  Receipt Date: 20121003
  Transmission Date: 20130627
  Serious: Yes (Disabling)
  Sender: FDA-Public Use
  Company Number: None

PATIENT
  Age: 71 Year
  Sex: Female
  Weight: 104.33 kg

DRUGS (1)
  1. VESICARE 10 MG ASTELLAS [Suspect]
     Indication: BLADDER DISORDER
     Route: 048
     Dates: start: 20120712, end: 20120728

REACTIONS (1)
  - Vision blurred [None]
